FAERS Safety Report 8390322 (Version 5)
Quarter: 2013Q1

REPORT INFORMATION
  Report Type: Report from Study
  Country: CA (occurrence: CA)
  Receive Date: 20120203
  Receipt Date: 20130314
  Transmission Date: 20140127
  Serious: Yes (Hospitalization)
  Sender: FDA-Public Use
  Company Number: CA-ROCHE-1036462

PATIENT
  Age: 54 Year
  Sex: Female
  Weight: 170 kg

DRUGS (2)
  1. PEG-INTERFERON ALFA 2A [Suspect]
     Indication: CHRONIC HEPATITIS C
     Route: 058
     Dates: start: 20111019, end: 20130207
  2. RIBAVIRIN [Suspect]
     Indication: CHRONIC HEPATITIS C
     Route: 048
     Dates: start: 20111019, end: 20130207

REACTIONS (5)
  - Hypokalaemia [Recovered/Resolved]
  - Thrombocytopenia [Recovered/Resolved]
  - Pancreatitis [Recovered/Resolved]
  - Varices oesophageal [Recovered/Resolved]
  - Waist circumference increased [Recovered/Resolved]
